FAERS Safety Report 5494940-2 (Version None)
Quarter: 2007Q4

REPORT INFORMATION
  Report Type: 
  Country: None (occurrence: None)
  Receive Date: 20071024
  Receipt Date: 20071023
  Transmission Date: 20080405
  Serious: Yes (Other)
  Sender: FDA-Public Use
  Company Number: A0689219A

PATIENT
  Age: 43 Year
  Sex: Female

DRUGS (3)
  1. LAMICTAL [Suspect]
     Indication: BIPOLAR DISORDER
     Dosage: 150MG PER DAY
     Route: 048
     Dates: start: 20070925, end: 20070927
  2. CONCERTA [Concomitant]
  3. EFFEXOR [Concomitant]

REACTIONS (6)
  - DEAFNESS [None]
  - EXTERNAL EAR CELLULITIS [None]
  - GENITAL RASH [None]
  - HYPERSENSITIVITY [None]
  - RASH [None]
  - RASH GENERALISED [None]
